FAERS Safety Report 7421509-2 (Version None)
Quarter: 2011Q1

REPORT INFORMATION
  Report Type: 
  Country: None (occurrence: None)
  Receive Date: 20110302
  Receipt Date: 20101207
  Transmission Date: 20110831
  Serious: No
  Sender: FDA-Public Use
  Company Number: 020519

PATIENT
  Sex: Female
  Weight: 57 kg

DRUGS (4)
  1. PRAVASTATIN [Concomitant]
  2. PENTASA [Concomitant]
  3. CIMZIA [Suspect]
     Indication: CROHN'S DISEASE
     Dosage: (TWO SHOTS SUBCUTANEOUS)
     Route: 058
     Dates: start: 20081123
  4. ZOLOFT [Concomitant]

REACTIONS (5)
  - ASTHENIA [None]
  - FATIGUE [None]
  - NASOPHARYNGITIS [None]
  - UPPER RESPIRATORY TRACT INFECTION [None]
  - CROHN'S DISEASE [None]
